FAERS Safety Report 5855019-0 (Version None)
Quarter: 2008Q3

REPORT INFORMATION
  Report Type: 
  Country: None (occurrence: None)
  Receive Date: 20080822
  Receipt Date: 20080507
  Transmission Date: 20090109
  Serious: No
  Sender: FDA-Public Use
  Company Number: US-ABBOTT-08P-163-0451160-00

PATIENT
  Sex: Female
  Weight: 63.56 kg

DRUGS (7)
  1. SYNTHROID [Suspect]
     Indication: AUTOIMMUNE THYROIDITIS
     Route: 048
     Dates: start: 20071201
  2. SYNTHROID [Suspect]
     Dosage: TITRATED UP OVER 2.5MONTHS TO 0.088 MCG DAILY
     Route: 048
  3. SYNTHROID [Suspect]
     Dosage: 88 MCG DAILY
  4. ESCITALOPRAM OXALATE [Concomitant]
     Indication: DEPRESSION
     Route: 048
     Dates: start: 20060101
  5. ESCITALOPRAM OXALATE [Concomitant]
     Route: 048
     Dates: start: 20071001
  6. ERGOCALCIFEROL [Concomitant]
     Indication: VITAMIN D DEFICIENCY
     Dosage: 10,000 IU, 3 TIMES WEEKLY
     Route: 048
     Dates: start: 20080301, end: 20080301
  7. ERGOCALCIFEROL [Concomitant]
     Route: 048
     Dates: start: 20080401

REACTIONS (2)
  - DRUG INEFFECTIVE [None]
  - SOMNOLENCE [None]
